FAERS Safety Report 19427097 (Version 1)
Quarter: 2021Q2

REPORT INFORMATION
  Report Type: Spontaneous
  Country: US (occurrence: US)
  Receive Date: 20210616
  Receipt Date: 20210616
  Transmission Date: 20210717
  Serious: No
  Sender: FDA-Public Use
  Company Number: None

PATIENT
  Age: 80 Year
  Sex: Male
  Weight: 90.26 kg

DRUGS (1)
  1. HUMIRA [Suspect]
     Active Substance: ADALIMUMAB
     Indication: PSORIASIS
     Dosage: INJECT 80MG (2 PENS) SUBCUTANEOUSLY ON DAY 1, 40MG (1 PEN) ON DAY 8, THEN 40MG EVERY OTHER WEEK AS
     Route: 058
     Dates: start: 202012

REACTIONS (1)
  - Venous thrombosis [None]
